FAERS Safety Report 21800534 (Version 1)
Quarter: 2022Q4

REPORT INFORMATION
  Report Type: Spontaneous
  Country: CN (occurrence: CN)
  Receive Date: 20221230
  Receipt Date: 20221230
  Transmission Date: 20230113
  Serious: Yes (Other)
  Sender: FDA-Public Use
  Company Number: CN-009507513-2212CHN010343

PATIENT
  Age: 92 Year
  Sex: Female
  Weight: 42 kg

DRUGS (3)
  1. CILASTATIN SODIUM\IMIPENEM [Suspect]
     Active Substance: CILASTATIN SODIUM\IMIPENEM
     Indication: Anti-infective therapy
     Dosage: 1 DOSAGE FORM Q8H
     Route: 041
     Dates: start: 20221208, end: 20221211
  2. MEROPENEM [Concomitant]
     Active Substance: MEROPENEM
     Indication: Anti-infective therapy
     Dosage: 1 G TID
     Route: 041
     Dates: start: 20221207, end: 20221208
  3. DOXOFYLLINE [Concomitant]
     Active Substance: DOXOFYLLINE
     Indication: Obstructive airways disorder
     Dosage: 0.3 G QD
     Route: 041
     Dates: start: 20221207, end: 20221212

REACTIONS (4)
  - Epilepsy [Recovered/Resolved]
  - Trismus [Recovered/Resolved]
  - Oxygen saturation decreased [Recovered/Resolved]
  - Tremor [Recovered/Resolved]

NARRATIVE: CASE EVENT DATE: 20221211
